FAERS Safety Report 17312900 (Version 3)
Quarter: 2020Q1

REPORT INFORMATION
  Report Type: Spontaneous
  Country: US (occurrence: US)
  Receive Date: 20200124
  Receipt Date: 20200213
  Transmission Date: 20200409
  Serious: No
  Sender: FDA-Public Use
  Company Number: US-MTPC-MTDA2020-0040551

PATIENT

DRUGS (2)
  1. RADICAVA [Suspect]
     Active Substance: EDARAVONE
     Indication: AMYOTROPHIC LATERAL SCLEROSIS
     Dosage: 60 MILLIGRAM, QD 10 OUT OF 14 DAYS THEN 14 DAYS DRUG FREE
     Route: 042
     Dates: start: 20181203
  2. RILUZOLE. [Concomitant]
     Active Substance: RILUZOLE
     Indication: AMYOTROPHIC LATERAL SCLEROSIS
     Dosage: 50 MILLIGRAM, BID
     Route: 065
     Dates: start: 20150924

REACTIONS (3)
  - Therapeutic response unexpected [Not Recovered/Not Resolved]
  - Speech disorder [Unknown]
  - Disease progression [Unknown]
